FAERS Safety Report 5017288-9 (Version None)
Quarter: 2006Q2

REPORT INFORMATION
  Report Type: 
  Country: None (occurrence: None)
  Receive Date: 20060602
  Receipt Date: 20060531
  Transmission Date: 20061013
  Serious: Yes (Death)
  Sender: FDA-Public Use
  Company Number: US-ABBOTT-06P-163-0333910-00

PATIENT
  Sex: Female
  Weight: 95.8 kg

DRUGS (1)
  1. DIVALPROEX SODIUM [Suspect]
     Indication: ACUTE MYELOID LEUKAEMIA
     Route: 048
     Dates: start: 20030122, end: 20030224

REACTIONS (1)
  - DEATH [None]
